FAERS Safety Report 5264815-2 (Version None)
Quarter: 2007Q1

REPORT INFORMATION
  Report Type: 
  Country: None (occurrence: None)
  Receive Date: 20070314
  Receipt Date: 20070313
  Transmission Date: 20070707
  Serious: Yes (Other)
  Sender: FDA-Public Use
  Company Number: US-GLAXOSMITHKLINE-A0640977A

PATIENT
  Age: 43 Year
  Sex: Male
  Weight: 95.3 kg

DRUGS (2)
  1. FLOLAN [Suspect]
     Dosage: 10NGKM UNKNOWN
     Route: 042
     Dates: start: 20070105
  2. NO CONCURRENT MEDICATION [Concomitant]

REACTIONS (2)
  - CATHETER RELATED COMPLICATION [None]
  - PHARMACEUTICAL PRODUCT COMPLAINT [None]
